FAERS Safety Report 16557399 (Version 2)
Quarter: 2019Q3

REPORT INFORMATION
  Report Type: Spontaneous
  Country: DK (occurrence: DK)
  Receive Date: 20190711
  Receipt Date: 20190808
  Transmission Date: 20191004
  Serious: Yes (Congenital Anomaly, Other)
  Sender: FDA-Public Use
  Company Number: DK-MYLANLABS-2019M1063169

PATIENT
  Sex: Male
  Weight: 3.67 kg

DRUGS (8)
  1. INFLIXIMAB [Suspect]
     Active Substance: INFLIXIMAB
     Dosage: 300 MG, 8TH WEEKLY
     Route: 064
  2. MISOPROSTOL. [Concomitant]
     Active Substance: MISOPROSTOL
     Indication: LABOUR INDUCTION
     Dosage: UNK
     Route: 064
  3. ADALIMUMAB [Suspect]
     Active Substance: ADALIMUMAB
     Indication: COLITIS
     Dosage: 40 MILLIGRAM, QW
     Route: 064
  4. MERCAPTOPURINE. [Suspect]
     Active Substance: MERCAPTOPURINE
     Indication: COLITIS
     Dosage: UNKNOWN
     Route: 064
  5. BUDESONIDE. [Suspect]
     Active Substance: BUDESONIDE
     Indication: COLITIS
     Dosage: UNK
     Route: 064
  6. MESALAZINE [Suspect]
     Active Substance: MESALAMINE
     Indication: COLITIS
     Dosage: UNKNOWN
     Route: 064
  7. ADALIMUMAB [Suspect]
     Active Substance: ADALIMUMAB
     Dosage: UNK
     Route: 064
  8. INFLIXIMAB [Suspect]
     Active Substance: INFLIXIMAB
     Indication: COLITIS
     Dosage: 300 MG, 8TH WEEKLY
     Route: 064

REACTIONS (2)
  - Foetal distress syndrome [Unknown]
  - Foetal exposure during pregnancy [Recovered/Resolved]
